FAERS Safety Report 4636781-1 (Version None)
Quarter: 2005Q2

REPORT INFORMATION
  Report Type: 
  Country: None (occurrence: None)
  Receive Date: 20050414
  Receipt Date: 20050408
  Transmission Date: 20051028
  Serious: Yes (Other)
  Sender: FDA-Public Use
  Company Number: S05-USA-01760-01

PATIENT
  Age: 47 Year
  Sex: Female

DRUGS (3)
  1. LEXAPRO [Suspect]
     Indication: DEPRESSION
     Dosage: 20 MG QD; PO
     Route: 048
     Dates: start: 20020101, end: 20050301
  2. LEXAPRO [Suspect]
     Indication: DEPRESSION
     Dosage: 15 MG QD; PO
     Route: 048
     Dates: start: 20050301
  3. CONTACT LENS SOLUTION (NOS) [Suspect]
     Indication: CORRECTIVE LENS USER
     Dates: end: 20050101

REACTIONS (5)
  - BACK PAIN [None]
  - CORNEAL SCAR [None]
  - EYE PAIN [None]
  - FACIAL PAIN [None]
  - STEVENS-JOHNSON SYNDROME [None]
